FAERS Safety Report 17359755 (Version 1)
Quarter: 2020Q1

REPORT INFORMATION
  Report Type: Spontaneous
  Country: US (occurrence: US)
  Receive Date: 20200203
  Receipt Date: 20200203
  Transmission Date: 20200409
  Serious: Yes (Hospitalization, Other)
  Sender: FDA-Public Use
  Company Number: US-AMGEN-USASP2020015618

PATIENT
  Age: 52 Year
  Sex: Male
  Weight: 87 kg

DRUGS (3)
  1. ARANESP [Suspect]
     Active Substance: DARBEPOETIN ALFA
     Indication: HAEMOGLOBIN ABNORMAL
     Dosage: UNK
     Route: 065
  2. AVASTIN [Concomitant]
     Active Substance: BEVACIZUMAB
  3. FOLFOX [Concomitant]
     Active Substance: FLUOROURACIL\LEUCOVORIN CALCIUM\OXALIPLATIN

REACTIONS (2)
  - Pulmonary embolism [Unknown]
  - Renal impairment [Unknown]
